FAERS Safety Report 4921557-8 (Version None)
Quarter: 2006Q1

REPORT INFORMATION
  Report Type: 
  Country: None (occurrence: None)
  Receive Date: 20060222
  Receipt Date: 20060222
  Transmission Date: 20060701
  Serious: Yes (Other)
  Sender: FDA-Public Use
  Company Number: None

PATIENT
  Age: 63 Year
  Sex: Female

DRUGS (2)
  1. METHYLCELLULOSE (FORMULATION UNKNOWN) (METHYLCELLULOSE) [Suspect]
     Indication: GASTROINTESTINAL DISORDER
     Dosage: ORAL
     Route: 048
     Dates: start: 20050501
  2. ATORVASTATIN CALCIUM [Concomitant]

REACTIONS (4)
  - DIZZINESS [None]
  - EYE ROLLING [None]
  - REACTION TO FOOD ADDITIVE [None]
  - SYNCOPE [None]
